FAERS Safety Report 5821768-3 (Version None)
Quarter: 2008Q3

REPORT INFORMATION
  Report Type: 
  Country: None (occurrence: None)
  Receive Date: 20080724
  Receipt Date: 20080715
  Transmission Date: 20090109
  Serious: Yes (Life-Threatening)
  Sender: FDA-Public Use
  Company Number: JP-ASTRAZENECA-2008AP04999

PATIENT
  Age: 69 Year
  Sex: Female
  Weight: 67 kg

DRUGS (3)
  1. MEROPEN [Suspect]
     Indication: BRAIN ABSCESS
     Route: 041
     Dates: start: 20080410, end: 20080501
  2. VANCOMYCIN HYDROCHLORIDE [Suspect]
     Indication: BRAIN ABSCESS
     Route: 041
     Dates: start: 20080410, end: 20080421
  3. VANCOMYCIN HYDROCHLORIDE [Suspect]
     Route: 041
     Dates: start: 20080422, end: 20080430

REACTIONS (1)
  - DRUG ERUPTION [None]
